FAERS Safety Report 24010534 (Version 1)
Quarter: 2024Q2

REPORT INFORMATION
  Report Type: Report from Study
  Country: US (occurrence: US)
  Receive Date: 20240625
  Receipt Date: 20240625
  Transmission Date: 20240715
  Serious: Yes (Other)
  Sender: FDA-Public Use
  Company Number: US-GILEAD-2024-0677177

PATIENT
  Sex: Female

DRUGS (2)
  1. AZTREONAM LYSINE [Suspect]
     Active Substance: AZTREONAM LYSINE
     Indication: Pseudomonas infection
     Dosage: 75 MG, TID (28 DAYS ON 28 DAYS OFF)
     Route: 055
  2. AZTREONAM LYSINE [Suspect]
     Active Substance: AZTREONAM LYSINE
     Indication: Bronchitis

REACTIONS (2)
  - Pseudomonas bronchitis [Unknown]
  - Off label use [Not Recovered/Not Resolved]
